FAERS Safety Report 4946344-6 (Version None)
Quarter: 2006Q1

REPORT INFORMATION
  Report Type: 
  Country: None (occurrence: None)
  Receive Date: 20060317
  Receipt Date: 20060308
  Transmission Date: 20060701
  Serious: Yes (Death)
  Sender: FDA-Public Use
  Company Number: CH-JNJFOC-20060302388

PATIENT
  Sex: Female

DRUGS (5)
  1. REMINYL [Suspect]
     Route: 048
  2. REMINYL [Suspect]
     Indication: DEMENTIA ALZHEIMER'S TYPE
     Route: 048
  3. HALOPERIDOL DECANOATE [Concomitant]
     Indication: DEMENTIA
     Route: 065
  4. ZESTRIL [Concomitant]
     Indication: HYPERTENSION
     Route: 048
  5. TORSEMIDE [Concomitant]
     Route: 048

REACTIONS (1)
  - DEATH [None]
